FAERS Safety Report 24274993 (Version 1)
Quarter: 2024Q3

REPORT INFORMATION
  Report Type: Spontaneous
  Country: CA (occurrence: CA)
  Receive Date: 20240902
  Receipt Date: 20240902
  Transmission Date: 20241017
  Serious: Yes (Hospitalization)
  Sender: JOHNSON AND JOHNSON
  Company Number: CA-JNJFOC-20240877326

PATIENT
  Age: 46 Year
  Sex: Female

DRUGS (15)
  1. INVOKANA [Suspect]
     Active Substance: CANAGLIFLOZIN
     Indication: Product used for unknown indication
     Route: 048
  2. ACETAMINOPHEN [Concomitant]
     Active Substance: ACETAMINOPHEN
  3. ADVAIR HFA [Concomitant]
     Active Substance: FLUTICASONE PROPIONATE\SALMETEROL XINAFOATE
  4. ELIQUIS [Concomitant]
     Active Substance: APIXABAN
  5. HUMALOG [Concomitant]
     Active Substance: INSULIN LISPRO
  6. IBUPROFEN [Concomitant]
     Active Substance: IBUPROFEN
  7. IRON [Concomitant]
     Active Substance: IRON
  8. JANUVIA [Concomitant]
     Active Substance: SITAGLIPTIN PHOSPHATE
     Route: 048
  9. LAMOTRIGINE [Concomitant]
     Active Substance: LAMOTRIGINE
  10. LEVEMIR [Concomitant]
     Active Substance: INSULIN DETEMIR
     Route: 058
  11. METFORMIN [Concomitant]
     Active Substance: METFORMIN HYDROCHLORIDE
  12. OXYCODONE [Concomitant]
     Active Substance: OXYCODONE
  13. PANTOPRAZOLE [Concomitant]
     Active Substance: PANTOPRAZOLE
     Route: 042
  14. PERINDOPRIL [Concomitant]
     Active Substance: PERINDOPRIL
  15. ROSUVASTATIN [Concomitant]
     Active Substance: ROSUVASTATIN\ROSUVASTATIN CALCIUM

REACTIONS (3)
  - Euglycaemic diabetic ketoacidosis [Recovered/Resolved]
  - Hypophagia [Recovered/Resolved]
  - Metabolic acidosis [Recovered/Resolved]
